FAERS Safety Report 7338682-7 (Version None)
Quarter: 2011Q1

REPORT INFORMATION
  Report Type: 
  Country: None (occurrence: None)
  Receive Date: 20110308
  Receipt Date: 20110301
  Transmission Date: 20110831
  Serious: Yes (Hospitalization)
  Sender: FDA-Public Use
  Company Number: A0894992A

PATIENT
  Age: 60 Year
  Sex: Male

DRUGS (6)
  1. COZAAR [Concomitant]
  2. DIOVAN [Concomitant]
  3. AVANDIA [Suspect]
     Dosage: 4MG PER DAY
     Route: 048
     Dates: end: 20070803
  4. LIPITOR [Concomitant]
  5. LASIX [Concomitant]
  6. AGGRENOX [Concomitant]

REACTIONS (3)
  - CEREBROVASCULAR ACCIDENT [None]
  - MENTAL DISORDER DUE TO A GENERAL MEDICAL CONDITION [None]
  - DEPRESSION [None]
